FAERS Safety Report 19835357 (Version 3)
Quarter: 2021Q4

REPORT INFORMATION
  Report Type: Report from Study
  Country: FR (occurrence: FR)
  Receive Date: 20210915
  Receipt Date: 20211116
  Transmission Date: 20220303
  Serious: Yes (Other)
  Sender: FDA-Public Use
  Company Number: FR-GLAXOSMITHKLINE-FR2021EME193102

PATIENT
  Age: 23 Year
  Sex: Male
  Weight: 58 kg

DRUGS (2)
  1. ALBUTEROL SULFATE [Suspect]
     Active Substance: ALBUTEROL SULFATE
     Indication: Spinal muscular atrophy
     Dosage: 2 MG TABLET, TID
     Route: 048
     Dates: end: 2021
  2. ALBUTEROL SULFATE [Suspect]
     Active Substance: ALBUTEROL SULFATE
     Indication: Myasthenia gravis

REACTIONS (2)
  - Amyotrophy [Not Recovered/Not Resolved]
  - Motor dysfunction [Not Recovered/Not Resolved]

NARRATIVE: CASE EVENT DATE: 20170101
